FAERS Safety Report 24748090 (Version 1)
Quarter: 2024Q4

REPORT INFORMATION
  Report Type: Spontaneous
  Country: IT (occurrence: IT)
  Receive Date: 20241218
  Receipt Date: 20241218
  Transmission Date: 20250115
  Serious: Yes (Other)
  Sender: RANBAXY
  Company Number: IT-SUN PHARMACEUTICAL INDUSTRIES LTD-2024R1-485001

PATIENT
  Age: 71 Year
  Sex: Male

DRUGS (3)
  1. DOXORUBICIN [Suspect]
     Active Substance: DOXORUBICIN
     Indication: Chemotherapy
     Dosage: 25 MG/MQ/ON DAY 1 AND DAY 15 OF EACH CYCLE OF 28 DAYS, FOR 6 CYCLES IN TOTAL
     Route: 065
  2. ADCETRIS [Suspect]
     Active Substance: BRENTUXIMAB VEDOTIN
     Indication: Chemotherapy
     Dosage: 1.2 MG/K  ON DAY 1 AND DAY 15 OF EACH CYCLE OF 28 DAYS, FOR 6 CYCLES IN TOTAL
     Route: 065
  3. DACARBAZINE [Suspect]
     Active Substance: DACARBAZINE
     Indication: Chemotherapy
     Dosage: 375 MG/MQ; ON DAY 1 AND DAY 15 OF EACH CYCLE OF 28 DAYS, FOR 6 CYCLES IN TOTAL
     Route: 065

REACTIONS (1)
  - Posterior reversible encephalopathy syndrome [Unknown]
